FAERS Safety Report 8341027-7 (Version None)
Quarter: 2012Q2

REPORT INFORMATION
  Report Type: 
  Country: None (occurrence: None)
  Receive Date: 20120502
  Receipt Date: 20120416
  Transmission Date: 20120825
  Serious: Yes (Hospitalization)
  Sender: FDA-Public Use
  Company Number: DSA_56197_2012

PATIENT
  Age: 70 Year
  Sex: Male

DRUGS (6)
  1. ENALAPRIL MALEATE [Suspect]
     Indication: HYPERTENSION
     Dosage: 10 MG QD ORAL, 10 MG QD ORAL
     Route: 048
     Dates: start: 20110723, end: 20110723
  2. ENALAPRIL MALEATE [Suspect]
     Indication: HYPERTENSION
     Dosage: 10 MG QD ORAL, 10 MG QD ORAL
     Route: 048
     Dates: start: 20040101, end: 20110723
  3. LASIX [Concomitant]
  4. PROVISACOR (PROVISACOR - ROSUVASTATIN CALCIUM) (NOT SPECIFIED) [Suspect]
     Indication: PRODUCT USED FOR UNKNOWN INDICATION
     Dosage: DF ORAL
     Route: 048
     Dates: end: 20110401
  5. ASPIRIN [Concomitant]
  6. CARVEDILOL [Concomitant]

REACTIONS (5)
  - ASPARTATE AMINOTRANSFERASE INCREASED [None]
  - ALANINE AMINOTRANSFERASE INCREASED [None]
  - CROSS SENSITIVITY REACTION [None]
  - SWELLING FACE [None]
  - ANGIOEDEMA [None]
